FAERS Safety Report 7211837-8 (Version None)
Quarter: 2011Q1

REPORT INFORMATION
  Report Type: 
  Country: None (occurrence: None)
  Receive Date: 20110106
  Receipt Date: 20101227
  Transmission Date: 20110831
  Serious: Yes (Other)
  Sender: FDA-Public Use
  Company Number: BR-AMGEN-BRASP2010012500

PATIENT

DRUGS (2)
  1. ENBREL [Suspect]
     Indication: PSORIATIC ARTHROPATHY
     Dosage: 50 MG, WEEKLY
     Route: 058
     Dates: start: 20100801
  2. SIMVASTATIN [Concomitant]
     Dosage: UNK
     Dates: start: 20070101

REACTIONS (2)
  - HEAD DISCOMFORT [None]
  - BLOOD URIC ACID INCREASED [None]
